FAERS Safety Report 11128856 (Version 2)
Quarter: 2015Q2

REPORT INFORMATION
  Report Type: Report from Study
  Country: US (occurrence: US)
  Receive Date: 20150521
  Receipt Date: 20150602
  Transmission Date: 20150821
  Serious: Yes (Hospitalization, Other)
  Sender: FDA-Public Use
  Company Number: PHEH2015US009145

PATIENT

DRUGS (1)
  1. ZORTRESS [Suspect]
     Active Substance: EVEROLIMUS
     Indication: PRODUCT USED FOR UNKNOWN INDICATION
     Dosage: 4 DF, BID (4 TABLETS EVERY MORNING AND 4 TABLETS EVERY NIGHT)
     Route: 048

REACTIONS (5)
  - Hepatic cancer metastatic [Unknown]
  - Adrenal insufficiency [Unknown]
  - Metastases to adrenals [Unknown]
  - Chest pain [Unknown]
  - Malaise [Unknown]
